FAERS Safety Report 18140391 (Version 1)
Quarter: 2020Q3

REPORT INFORMATION
  Report Type: Spontaneous
  Country: US (occurrence: US)
  Receive Date: 20200812
  Receipt Date: 20200812
  Transmission Date: 20201103
  Serious: No
  Sender: FDA-Public Use
  Company Number: None

PATIENT
  Age: 73 Year
  Sex: Male
  Weight: 97.52 kg

DRUGS (8)
  1. MIRAPEX [Concomitant]
     Active Substance: PRAMIPEXOLE DIHYDROCHLORIDE
  2. DYAZIDE [Concomitant]
     Active Substance: HYDROCHLOROTHIAZIDE\TRIAMTERENE
  3. ASPIRIN. [Concomitant]
     Active Substance: ASPIRIN
  4. IRON [Concomitant]
     Active Substance: IRON
  5. MULTIPLE VITAMINS [Concomitant]
     Active Substance: VITAMINS
  6. POTASSIUM CITRATE. [Concomitant]
     Active Substance: POTASSIUM CITRATE
  7. COLACE [Concomitant]
     Active Substance: DOCUSATE SODIUM
  8. CAPECITABINE. [Suspect]
     Active Substance: CAPECITABINE
     Indication: COLON CANCER
     Route: 048
     Dates: start: 20200724, end: 20200812

REACTIONS (2)
  - Fatigue [None]
  - Rash [None]

NARRATIVE: CASE EVENT DATE: 20200812
